FAERS Safety Report 10385063 (Version 1)
Quarter: 2014Q3

REPORT INFORMATION
  Report Type: Spontaneous
  Country: US (occurrence: None)
  Receive Date: 20140813
  Receipt Date: 20140813
  Transmission Date: 20150326
  Serious: Yes (Disabling)
  Sender: FDA-Public Use
  Company Number: None

PATIENT
  Age: 37 Year
  Sex: Female
  Weight: 108.86 kg

DRUGS (8)
  1. METFORMIN [Concomitant]
     Active Substance: METFORMIN HYDROCHLORIDE
  2. WOMEN^S ONE-A-DAY VITAMIN [Concomitant]
  3. LIPITOR GENERIC [Suspect]
     Active Substance: ATORVASTATIN CALCIUM
     Indication: BLOOD CHOLESTEROL INCREASED
     Dosage: 1 PILL  1X/DAY  BY MOUTH?FROM: MID-JUNE 2014 TO LATE JULY 2014
     Route: 048
  4. ALLEGRA [Concomitant]
     Active Substance: FEXOFENADINE HYDROCHLORIDE
  5. DYMISTA [Concomitant]
     Active Substance: AZELASTINE HYDROCHLORIDE\FLUTICASONE PROPIONATE
  6. NEEON [Concomitant]
  7. SUDAPHED [Concomitant]
  8. LYSINE [Concomitant]
     Active Substance: LYSINE

REACTIONS (3)
  - Fatigue [None]
  - Memory impairment [None]
  - Impaired work ability [None]

NARRATIVE: CASE EVENT DATE: 201407
